FAERS Safety Report 10533863 (Version 1)
Quarter: 2014Q4

REPORT INFORMATION
  Report Type: Spontaneous
  Country: FR (occurrence: None)
  Receive Date: 20141020
  Receipt Date: 20141020
  Transmission Date: 20150529
  Serious: No
  Sender: FDA-Public Use
  Company Number: B09282486A

PATIENT
  Age: 55 Year
  Sex: Male
  Weight: 49 kg

DRUGS (4)
  1. NORVIR [Suspect]
     Active Substance: RITONAVIR
     Indication: HIV INFECTION
     Route: 048
     Dates: start: 20061223
  2. INTELENCE [Suspect]
     Active Substance: ETRAVIRINE
     Indication: HIV INFECTION
     Route: 048
     Dates: start: 20130227
  3. DOLUTEGRAVIR (DOLUTEGRAVIR) UNKNOWN [Suspect]
     Active Substance: DOLUTEGRAVIR
     Indication: HIV INFECTION
     Route: 048
     Dates: start: 20130319
  4. PREZISTA [Suspect]
     Active Substance: DARUNAVIR ETHANOLATE
     Indication: HIV INFECTION
     Dosage: 2000,000 IU.  1 AMPOULE ONCE A MONTH FOR 2 MONTHS, ORAL
     Route: 048
     Dates: start: 20130227

REACTIONS (1)
  - Gamma-glutamyltransferase increased [None]

NARRATIVE: CASE EVENT DATE: 20130523
